FAERS Safety Report 12479527 (Version 1)
Quarter: 2016Q2

REPORT INFORMATION
  Report Type: Spontaneous
  Country: US (occurrence: None)
  Receive Date: 20160617
  Receipt Date: 20160617
  Transmission Date: 20160815
  Serious: No
  Sender: FDA-Public Use
  Company Number: None

PATIENT
  Age: 62 Year
  Sex: Male
  Weight: 97.52 kg

DRUGS (1)
  1. LEVOFLOXACIN TABS 500MG [Suspect]
     Active Substance: LEVOFLOXACIN
     Indication: ENTEROCOCCAL INFECTION
     Route: 048
     Dates: start: 20160602, end: 20160605

REACTIONS (3)
  - Pain [None]
  - Muscle tightness [None]
  - Painful respiration [None]

NARRATIVE: CASE EVENT DATE: 20160606
